FAERS Safety Report 7693804-3 (Version None)
Quarter: 2011Q3

REPORT INFORMATION
  Report Type: 
  Country: None (occurrence: None)
  Receive Date: 20110819
  Receipt Date: 20110519
  Transmission Date: 20111222
  Serious: No
  Sender: FDA-Public Use
  Company Number: US-ALLERGAN-1106932US

PATIENT
  Age: 38 Year
  Sex: Female

DRUGS (1)
  1. LASTACAFT [Suspect]
     Indication: CONJUNCTIVITIS ALLERGIC
     Dosage: 1 GTT, QD
     Route: 047

REACTIONS (5)
  - CONJUNCTIVAL OEDEMA [None]
  - ERYTHEMA [None]
  - EYE DISORDER [None]
  - EYE PAIN [None]
  - EYE PRURITUS [None]
